FAERS Safety Report 4857947-1 (Version None)
Quarter: 2005Q4

REPORT INFORMATION
  Report Type: 
  Country: None (occurrence: None)
  Receive Date: 20051219
  Receipt Date: 20050421
  Transmission Date: 20060501
  Serious: No
  Sender: FDA-Public Use
  Company Number: US-GLAXOSMITHKLINE-A0555186A

PATIENT
  Age: 41 Year
  Sex: Female

DRUGS (1)
  1. NICODERM CQ [Suspect]
     Dosage: 21MG SINGLE DOSE
     Route: 062
     Dates: start: 20050421, end: 20050421

REACTIONS (3)
  - APPLICATION SITE HYPERAESTHESIA [None]
  - HYPOAESTHESIA [None]
  - SENSATION OF HEAVINESS [None]
